FAERS Safety Report 19937342 (Version 2)
Quarter: 2021Q4

REPORT INFORMATION
  Report Type: Report from Study
  Country: None (occurrence: CA)
  Receive Date: 20211010
  Receipt Date: 20211011
  Transmission Date: 20220304
  Serious: Yes (Other)
  Sender: FDA-Public Use
  Company Number: CA-ABBVIE-21K-028-4102947-00

PATIENT
  Age: 64 Year
  Sex: Female

DRUGS (1)
  1. GLECAPREVIR\PIBRENTASVIR [Suspect]
     Active Substance: GLECAPREVIR\PIBRENTASVIR
     Indication: Hepatitis C
     Dosage: 100/40 MG
     Route: 048
     Dates: start: 20210927

REACTIONS (20)
  - Dizziness [Unknown]
  - Product use complaint [Unknown]
  - Malaise [Unknown]
  - Insomnia [Unknown]
  - Cold sweat [Unknown]
  - Feeding disorder [Recovering/Resolving]
  - Hyperhidrosis [Unknown]
  - Tremor [Unknown]
  - Delirium [Unknown]
  - Gait disturbance [Unknown]
  - Vision blurred [Unknown]
  - Syncope [Unknown]
  - Impulse-control disorder [Unknown]
  - Chest discomfort [Unknown]
  - Mobility decreased [Unknown]
  - Abdominal pain upper [Unknown]
  - Vomiting [Unknown]
  - Diarrhoea [Unknown]
  - Nausea [Unknown]
  - Abdominal distension [Unknown]

NARRATIVE: CASE EVENT DATE: 20210101
